FAERS Safety Report 4884667-X (Version None)
Quarter: 2006Q1

REPORT INFORMATION
  Report Type: 
  Country: None (occurrence: None)
  Receive Date: 20060117
  Receipt Date: 20060104
  Transmission Date: 20060701
  Serious: Yes (Other)
  Sender: FDA-Public Use
  Company Number: 2005145406

PATIENT
  Age: 35 Year
  Sex: Female

DRUGS (4)
  1. XANAX [Suspect]
     Indication: PANIC DISORDER
     Dosage: 6 MG (2 MG, 3 IN 1 D)
  2. METHADONE HCL [Suspect]
     Indication: ILL-DEFINED DISORDER
  3. FIORICET [Suspect]
     Indication: ILL-DEFINED DISORDER
  4. KLONOPIN [Suspect]
     Indication: ILL-DEFINED DISORDER

REACTIONS (6)
  - DRUG DETOXIFICATION [None]
  - DRUG TOXICITY [None]
  - IMPAIRED DRIVING ABILITY [None]
  - IMPRISONMENT [None]
  - INTENTIONAL DRUG MISUSE [None]
  - INTENTIONAL OVERDOSE [None]
